FAERS Safety Report 21946377 (Version 1)
Quarter: 2023Q1

REPORT INFORMATION
  Report Type: Spontaneous
  Country: US (occurrence: None)
  Receive Date: 20230202
  Receipt Date: 20230202
  Transmission Date: 20230417
  Serious: Yes (Hospitalization)
  Sender: FDA-Public Use
  Company Number: None

PATIENT
  Age: 69 Year
  Sex: Male
  Weight: 85.05 kg

DRUGS (1)
  1. ZERBAXA [Suspect]
     Active Substance: CEFTOLOZANE SULFATE\TAZOBACTAM SODIUM
     Indication: Pneumonia
     Dosage: FREQUENCY : 3 TIMES A DAY;?
     Route: 042
     Dates: start: 20230118, end: 20230127

REACTIONS (7)
  - Angioedema [None]
  - Diarrhoea [None]
  - Intestinal angioedema [None]
  - Hypovolaemia [None]
  - Acute kidney injury [None]
  - Hypernatraemia [None]
  - Mast cell activation syndrome [None]

NARRATIVE: CASE EVENT DATE: 20230124
